FAERS Safety Report 9396028 (Version 1)
Quarter: 2013Q3

REPORT INFORMATION
  Report Type: Spontaneous
  Country: CA (occurrence: CA)
  Receive Date: 20130711
  Receipt Date: 20130711
  Transmission Date: 20140515
  Serious: Yes (Death, Life-Threatening, Hospitalization, Other)
  Sender: FDA-Public Use
  Company Number: CA-B.I. PHARMACEUTICALS,INC./RIDGEFIELD-2013-CN-01215CN

PATIENT
  Age: 95 Year
  Sex: Female
  Weight: 60 kg

DRUGS (11)
  1. PRADAX [Suspect]
     Dosage: 110 MG
     Route: 048
  2. ASA [Suspect]
     Dosage: 81 MG
     Route: 048
  3. CALCIUM [Concomitant]
  4. COVERSYL [Concomitant]
  5. FUROSEMIDE [Concomitant]
  6. HYDROMORPHONE [Concomitant]
  7. METOPROLOL [Concomitant]
  8. RISEDRONATE SODIUM [Concomitant]
  9. SIMVASTATIN [Concomitant]
  10. TYLENOL [Concomitant]
  11. VITAMIN D [Concomitant]

REACTIONS (4)
  - Gastrointestinal haemorrhage [Fatal]
  - Confusional state [Fatal]
  - Decreased appetite [Fatal]
  - Malaise [Fatal]
